FAERS Safety Report 23667467 (Version 1)
Quarter: 2024Q1

REPORT INFORMATION
  Report Type: Spontaneous
  Country: US (occurrence: US)
  Receive Date: 20240325
  Receipt Date: 20240325
  Transmission Date: 20240410
  Serious: Yes (Other)
  Sender: FDA-Public Use
  Company Number: US-BRISTOL-MYERS SQUIBB COMPANY-2024-045357

PATIENT
  Age: 71 Year
  Sex: Male

DRUGS (1)
  1. LENALIDOMIDE [Suspect]
     Active Substance: LENALIDOMIDE
     Indication: Hypokalaemia
     Dosage: TAKE 1 CAPSULE BY MOUTH EVERYDAY ON DAYS 1-21 WITH 7 DAYS OFF
     Route: 048

REACTIONS (2)
  - Eye infection [Not Recovered/Not Resolved]
  - Off label use [Unknown]
